FAERS Safety Report 18400428 (Version 2)
Quarter: 2020Q4

REPORT INFORMATION
  Report Type: Spontaneous
  Country: US (occurrence: US)
  Receive Date: 20201019
  Receipt Date: 20201022
  Transmission Date: 20210114
  Serious: Yes (Other)
  Sender: FDA-Public Use
  Company Number: US-PFIZER INC-2020385721

PATIENT
  Age: 65 Year
  Sex: Female
  Weight: 118.5 kg

DRUGS (1)
  1. HEPARIN SODIUM. [Suspect]
     Active Substance: HEPARIN SODIUM
     Dosage: UNK (25,000 UNITS PER 250ML)
     Route: 041
     Dates: start: 202009

REACTIONS (5)
  - Heparin-induced thrombocytopenia [Unknown]
  - Cardiac arrest [Unknown]
  - Acute myocardial infarction [Unknown]
  - Thrombosis [Unknown]
  - Coronary artery thrombosis [Unknown]

NARRATIVE: CASE EVENT DATE: 2020
